FAERS Safety Report 21597380 (Version 1)
Quarter: 2022Q4

REPORT INFORMATION
  Report Type: Spontaneous
  Country: US (occurrence: None)
  Receive Date: 20221114
  Receipt Date: 20221114
  Transmission Date: 20230113
  Serious: Yes (Hospitalization)
  Sender: FDA-Public Use
  Company Number: None

PATIENT
  Age: 66 Year
  Sex: Male
  Weight: 101.7 kg

DRUGS (1)
  1. DAPTOMYCIN [Suspect]
     Active Substance: DAPTOMYCIN
     Indication: Subdural abscess
     Dosage: FREQUENCY : DAILY;?
     Route: 042
     Dates: start: 20221103, end: 20221109

REACTIONS (5)
  - Asthenia [None]
  - Dyspnoea exertional [None]
  - Haemoglobin decreased [None]
  - Blood creatine phosphokinase increased [None]
  - Drug hypersensitivity [None]

NARRATIVE: CASE EVENT DATE: 20221109
